FAERS Safety Report 8064241-7 (Version None)
Quarter: 2011Q4

REPORT INFORMATION
  Report Type: 
  Country: None (occurrence: None)
  Receive Date: 20111221
  Receipt Date: 20110728
  Transmission Date: 20120403
  Serious: No
  Sender: FDA-Public Use
  Company Number: 2011S1000058

PATIENT
  Age: 54 Year
  Sex: Male
  Weight: 113.3993 kg

DRUGS (10)
  1. KRYSTEXXA [Suspect]
     Indication: GOUT
     Dosage: 8 MG;X1; IV
     Route: 042
     Dates: start: 20110718, end: 20110718
  2. KRYSTEXXA [Suspect]
     Indication: GOUT
     Dosage: 8 MG;X1; IV
     Route: 042
     Dates: start: 20110501, end: 20110501
  3. KRYSTEXXA [Suspect]
     Indication: GOUT
     Dosage: 8 MG;X1; IV
     Route: 042
     Dates: start: 20110328, end: 20110328
  4. KRYSTEXXA [Suspect]
     Indication: GOUT
     Dosage: 8 MG;X1; IV
     Route: 042
     Dates: start: 20110401, end: 20110401
  5. KRYSTEXXA [Suspect]
     Indication: GOUT
     Dosage: 8 MG;X1; IV
     Route: 042
     Dates: start: 20110701, end: 20110701
  6. KRYSTEXXA [Suspect]
     Indication: GOUT
     Dosage: 8 MG;X1; IV
     Route: 042
     Dates: start: 20110601, end: 20110601
  7. HYDROCODONE [Concomitant]
  8. METHYLPREDNISOLONE [Concomitant]
  9. COLCHICINE [Concomitant]
  10. INDOMETHACIN [Concomitant]

REACTIONS (2)
  - FATIGUE [None]
  - ASTHENIA [None]
